FAERS Safety Report 20627385 (Version 1)
Quarter: 2022Q1

REPORT INFORMATION
  Report Type: Spontaneous
  Country: US (occurrence: None)
  Receive Date: 20220322
  Receipt Date: 20220322
  Transmission Date: 20220424
  Serious: Yes (Hospitalization)
  Sender: FDA-Public Use
  Company Number: None

PATIENT
  Age: 47 Year
  Sex: Female
  Weight: 77.85 kg

DRUGS (1)
  1. STELARA [Suspect]
     Active Substance: USTEKINUMAB
     Indication: Crohn^s disease
     Dosage: OTHER FREQUENCY : Q8 WKS;?
     Route: 058
     Dates: start: 20210929

REACTIONS (3)
  - Pruritus [None]
  - Dysphonia [None]
  - Chest discomfort [None]

NARRATIVE: CASE EVENT DATE: 20220322
